FAERS Safety Report 8399752-8 (Version None)
Quarter: 2012Q2

REPORT INFORMATION
  Report Type: 
  Country: None (occurrence: None)
  Receive Date: 20120531
  Receipt Date: 20120525
  Transmission Date: 20120825
  Serious: Yes (Death)
  Sender: FDA-Public Use
  Company Number: JP-PFIZER INC-2012068340

PATIENT
  Age: 60 Year
  Sex: Female
  Weight: 49 kg

DRUGS (24)
  1. ARGATROBAN [Suspect]
     Dosage: 25MG/HOUR X 2H, 1 IN 1 D
     Route: 051
     Dates: start: 20111014, end: 20111018
  2. SOLU-MEDROL [Concomitant]
     Dosage: 500 MG
     Route: 042
     Dates: start: 20111016, end: 20111018
  3. NOREPINEPHRINE BITARTRATE [Concomitant]
     Indication: BLOOD PRESSURE DECREASED
     Dosage: UNK
     Route: 042
     Dates: start: 20111030, end: 20111106
  4. DEXMEDETOMIDINE HYDROCHLORIDE [Concomitant]
     Indication: SEDATION
     Dosage: PRN
     Route: 042
     Dates: start: 20111019, end: 20111028
  5. ARGATROBAN [Suspect]
     Indication: ANTICOAGULANT THERAPY
     Dosage: 10 MG
     Route: 040
     Dates: start: 20111014, end: 20111018
  6. ZOSYN [Concomitant]
     Dosage: 13.5 G
     Route: 042
     Dates: start: 20111026, end: 20111028
  7. LANSOPRAZOLE [Concomitant]
     Indication: PROPHYLAXIS
     Dosage: 60 MG
     Route: 042
     Dates: start: 20111018, end: 20111106
  8. ENTECAVIR [Concomitant]
     Dosage: 0.5 G
     Route: 048
     Dates: start: 20111001, end: 20111029
  9. MARZULENE [Concomitant]
     Indication: PROPHYLAXIS
     Dosage: 1.5 G
     Route: 048
     Dates: start: 20111104, end: 20111106
  10. NAFAMOSTAT [Concomitant]
     Dosage: 960 MG
     Route: 051
     Dates: start: 20111019, end: 20111107
  11. KYTRIL [Concomitant]
     Indication: PROPHYLAXIS
     Dosage: 3 MG
     Route: 042
     Dates: start: 20111016, end: 20111016
  12. VANCOMYCIN [Concomitant]
     Dosage: 1.5 G
     Route: 042
     Dates: start: 20111102, end: 20111105
  13. MINOCYCLINE HYDROCHLORIDE [Concomitant]
     Dosage: 200 MG
     Route: 042
     Dates: start: 20111024, end: 20111101
  14. HEPARIN SODIUM [Concomitant]
     Dosage: UNK
     Route: 051
     Dates: start: 20110930
  15. CYCLOPHOSPHAMIDE [Concomitant]
     Dosage: 500 MG
     Route: 042
     Dates: start: 20111016, end: 20111016
  16. MAXIPIME [Concomitant]
     Dosage: 2 G
     Route: 042
     Dates: start: 20111021, end: 20111025
  17. POLYMYXIN B SULFATE [Concomitant]
     Indication: PROPHYLAXIS
     Dosage: 0.75 G
     Route: 048
     Dates: start: 20111104, end: 20111106
  18. ENTERONON [Concomitant]
     Indication: PROPHYLAXIS
     Dosage: 3 G
     Route: 048
     Dates: start: 20111104, end: 20111106
  19. COTRIM [Concomitant]
     Dosage: 1 TABLET
     Route: 048
     Dates: start: 20110929, end: 20111101
  20. NEUTROGIN [Concomitant]
     Dosage: 100 MCG
     Route: 058
     Dates: start: 20111021, end: 20111021
  21. DIPRIVAN [Concomitant]
     Indication: SEDATION
     Dosage: PRN
     Route: 042
     Dates: start: 20111019, end: 20111026
  22. CALCIUM CARBONATE [Concomitant]
     Indication: PROPHYLAXIS
     Dosage: 40 ML
     Route: 042
     Dates: start: 20111016, end: 20111022
  23. MEROPENEM [Concomitant]
     Dosage: 2 G
     Route: 042
     Dates: start: 20111102, end: 20111106
  24. DAI-KENCHU-TO [Concomitant]
     Indication: PROPHYLAXIS
     Dosage: 15 G
     Route: 048
     Dates: start: 20111104, end: 20111106

REACTIONS (1)
  - PULMONARY ALVEOLAR HAEMORRHAGE [None]
